FAERS Safety Report 7323723-3 (Version None)
Quarter: 2011Q1

REPORT INFORMATION
  Report Type: 
  Country: None (occurrence: None)
  Receive Date: 20110216
  Receipt Date: 20110201
  Transmission Date: 20110831
  Serious: Yes (Hospitalization)
  Sender: FDA-Public Use
  Company Number: 026705

PATIENT
  Sex: Female
  Weight: 58.9676 kg

DRUGS (5)
  1. FERRO-SEQUELS [Concomitant]
  2. COUMADIN [Concomitant]
  3. CIMZIA [Suspect]
     Indication: RHEUMATOID ARTHRITIS
     Dosage: (SUBCUTANEOUS)
     Route: 058
     Dates: start: 20100301, end: 20101228
  4. METFORMIN [Concomitant]
  5. PERCOCET 100446701/ [Concomitant]

REACTIONS (2)
  - DRUG INEFFECTIVE [None]
  - THERAPEUTIC RESPONSE DECREASED [None]
